FAERS Safety Report 18453242 (Version 1)
Quarter: 2020Q4

REPORT INFORMATION
  Report Type: Spontaneous
  Country: US (occurrence: US)
  Receive Date: 20201102
  Receipt Date: 20201102
  Transmission Date: 20210114
  Serious: Yes (Hospitalization)
  Sender: FDA-Public Use
  Company Number: None

PATIENT
  Sex: Male
  Weight: 23.8 kg

DRUGS (4)
  1. DOXORUBICIN HYDROCHLORIDE. [Suspect]
     Active Substance: DOXORUBICIN HYDROCHLORIDE
     Dates: end: 20201022
  2. ZINECARD [Suspect]
     Active Substance: DEXRAZOXANE HYDROCHLORIDE
     Dates: end: 20201022
  3. CYCLOPHOSPHAMIDE. [Suspect]
     Active Substance: CYCLOPHOSPHAMIDE
     Dates: end: 20201022
  4. VINCRISTINE SULFATE. [Suspect]
     Active Substance: VINCRISTINE SULFATE
     Dates: end: 20201022

REACTIONS (12)
  - Neck pain [None]
  - Metabolic acidosis [None]
  - Neutropenia [None]
  - Colitis [None]
  - Hypophagia [None]
  - Diarrhoea [None]
  - Nausea [None]
  - Back pain [None]
  - White blood cell count increased [None]
  - Abdominal pain [None]
  - Pain in extremity [None]
  - Pain in jaw [None]

NARRATIVE: CASE EVENT DATE: 20201025
